FAERS Safety Report 9252403 (Version 2)
Quarter: 2014Q1

REPORT INFORMATION
  Report Type: Spontaneous
  Country: US (occurrence: None)
  Receive Date: 20130305
  Receipt Date: 20140306
  Transmission Date: 20141002
  Serious: Yes (Other)
  Sender: FDA-Public Use
  Company Number: 163-21880-12083316

PATIENT
  Age: 81 Year
  Sex: Male
  Weight: 93 kg

DRUGS (6)
  1. REVLIMID (LENALIDOMIDE) (25 MILLIGRAM, CAPSULES) [Suspect]
     Indication: PLASMA CELL MYELOMA
     Dosage: 25MG, 21 IN 21 D, PO
     Route: 048
     Dates: start: 20120712
  2. CETIRIZINE (CETIRIZINE) [Concomitant]
  3. PENICILLIN (PENICILLIN) [Concomitant]
  4. DEXAMETHASONE [Concomitant]
  5. DILTIAZEM [Concomitant]
  6. ATENOLOL [Concomitant]

REACTIONS (4)
  - Thrombosis [None]
  - Diarrhoea [None]
  - White blood cell count decreased [None]
  - Fatigue [None]
